FAERS Safety Report 8785650 (Version 1)
Quarter: 2012Q4

REPORT INFORMATION
  Report Type: Spontaneous
  Country: US (occurrence: None)
  Receive Date: 20120904
  Receipt Date: 20120904
  Transmission Date: 20130627
  Serious: Yes (Life-Threatening)
  Sender: FDA-Public Use
  Company Number: 100406-000169

PATIENT
  Age: 25 Year
  Sex: Female

DRUGS (3)
  1. PROACTIV RENEWING CLEANSER [Suspect]
     Indication: ACNE
     Dates: start: 20100402, end: 20100403
  2. PROACTIV REPAIRING TREATMENT [Suspect]
     Dates: start: 20100402, end: 20100403
  3. PROACTIV REFINING MASK [Suspect]
     Dates: start: 20100402, end: 20100403

REACTIONS (5)
  - Urticaria [None]
  - Rash [None]
  - Pruritus [None]
  - Local swelling [None]
  - Dyspnoea [None]
